FAERS Safety Report 6795832-9 (Version None)
Quarter: 2010Q2

REPORT INFORMATION
  Report Type: 
  Country: None (occurrence: None)
  Receive Date: 20100625
  Receipt Date: 20100624
  Transmission Date: 20101027
  Serious: Yes (Death)
  Sender: FDA-Public Use
  Company Number: A0862834A

PATIENT
  Age: 71 Year
  Sex: Female

DRUGS (5)
  1. PROMACTA [Suspect]
     Indication: DRUG USE FOR UNKNOWN INDICATION
     Dosage: 50MG PER DAY
     Route: 048
  2. VENTOLIN [Concomitant]
     Route: 055
  3. LANOXIN [Concomitant]
     Route: 048
  4. CARDIZEM CD [Concomitant]
     Route: 048
  5. PROZAC [Concomitant]
     Route: 048

REACTIONS (4)
  - BARRETT'S OESOPHAGUS [None]
  - CHRONIC OBSTRUCTIVE PULMONARY DISEASE [None]
  - IDIOPATHIC THROMBOCYTOPENIC PURPURA [None]
  - LUNG ADENOCARCINOMA [None]
